FAERS Safety Report 23258223 (Version 1)
Quarter: 2023Q4

REPORT INFORMATION
  Report Type: Spontaneous
  Country: US (occurrence: US)
  Receive Date: 20231204
  Receipt Date: 20231204
  Transmission Date: 20240110
  Serious: Yes (Hospitalization, Other)
  Sender: FDA-Public Use
  Company Number: US-GLAXOSMITHKLINE-US2023GSK166816

PATIENT

DRUGS (11)
  1. BUPROPION [Suspect]
     Active Substance: BUPROPION
     Indication: Major depression
     Dosage: 150 MG
     Route: 048
  2. BUPROPION [Suspect]
     Active Substance: BUPROPION
     Dosage: 100 MG, BID
     Route: 048
  3. QUETIAPINE [Suspect]
     Active Substance: QUETIAPINE
     Indication: Major depression
     Dosage: 50 MG, BID
  4. QUETIAPINE [Suspect]
     Active Substance: QUETIAPINE
     Dosage: 150 MG, BID
  5. QUETIAPINE [Suspect]
     Active Substance: QUETIAPINE
     Dosage: 200 MG, BID
  6. QUETIAPINE [Suspect]
     Active Substance: QUETIAPINE
     Dosage: 500 MG
     Route: 048
  7. QUETIAPINE [Suspect]
     Active Substance: QUETIAPINE
     Dosage: 700 MG QHS
     Route: 048
  8. QUETIAPINE [Suspect]
     Active Substance: QUETIAPINE
     Dosage: 500 MG QHS
     Route: 048
  9. METHYLPHENIDATE [Suspect]
     Active Substance: METHYLPHENIDATE
     Indication: Product used for unknown indication
     Dosage: 10 MG
     Route: 048
  10. METHYLPHENIDATE [Suspect]
     Active Substance: METHYLPHENIDATE
     Dosage: 5 MG
     Route: 048
  11. LISINOPRIL [Suspect]
     Active Substance: LISINOPRIL
     Indication: Product used for unknown indication
     Dosage: 20 TABLET

REACTIONS (2)
  - Suicide attempt [Unknown]
  - Overdose [Unknown]
